FAERS Safety Report 8310249-3 (Version None)
Quarter: 2012Q2

REPORT INFORMATION
  Report Type: 
  Country: None (occurrence: None)
  Receive Date: 20120425
  Receipt Date: 20120411
  Transmission Date: 20120825
  Serious: No
  Sender: FDA-Public Use
  Company Number: US-ROXANE LABORATORIES, INC.-2012-RO-00889RO

PATIENT
  Sex: Male

DRUGS (1)
  1. METHADONE HCL [Suspect]
     Indication: PAIN
     Dosage: 30 MG
     Route: 048
     Dates: start: 20120225, end: 20120301

REACTIONS (1)
  - DRUG INEFFECTIVE [None]
